FAERS Safety Report 15507198 (Version 1)
Quarter: 2018Q4

REPORT INFORMATION
  Report Type: Spontaneous
  Country: FR (occurrence: FR)
  Receive Date: 20181016
  Receipt Date: 20181016
  Transmission Date: 20190205
  Serious: Yes (Death)
  Sender: FDA-Public Use
  Company Number: FR-PFM-2018-12369

PATIENT

DRUGS (3)
  1. IMIPRAMINE [Suspect]
     Active Substance: IMIPRAMINE
     Indication: TOXICITY TO VARIOUS AGENTS
     Dosage: UNK
     Route: 048
     Dates: start: 20180818, end: 20180818
  2. PROPRANOLOL [Suspect]
     Active Substance: PROPRANOLOL HYDROCHLORIDE
     Indication: PRODUCT USED FOR UNKNOWN INDICATION
     Dosage: UNK
     Route: 048
     Dates: start: 20180818, end: 20180818
  3. OLANZAPINE. [Suspect]
     Active Substance: OLANZAPINE
     Indication: PRODUCT USED FOR UNKNOWN INDICATION
     Dosage: UNK
     Route: 048
     Dates: start: 20180818, end: 20180818

REACTIONS (5)
  - Respiratory disorder [Fatal]
  - Off label use [Unknown]
  - Toxicity to various agents [Fatal]
  - Product administered to patient of inappropriate age [Unknown]
  - Respiratory depression [Fatal]

NARRATIVE: CASE EVENT DATE: 20180819
